FAERS Safety Report 16053990 (Version 4)
Quarter: 2019Q2

REPORT INFORMATION
  Report Type: Spontaneous
  Country: US (occurrence: US)
  Receive Date: 20190308
  Receipt Date: 20190611
  Transmission Date: 20190711
  Serious: No
  Sender: FDA-Public Use
  Company Number: US-ACTELION-A-US2019-186550

PATIENT
  Age: 78 Year
  Sex: Female
  Weight: 62.59 kg

DRUGS (5)
  1. SILDENAFIL CITRATE. [Concomitant]
     Active Substance: SILDENAFIL CITRATE
  2. REMODULIN [Suspect]
     Active Substance: TREPROSTINIL
     Dosage: UNK
     Route: 058
  3. REMODULIN [Suspect]
     Active Substance: TREPROSTINIL
     Indication: PRODUCT USED FOR UNKNOWN INDICATION
     Dosage: UNK
     Route: 058
     Dates: start: 20190208
  4. ELIQUIS [Concomitant]
     Active Substance: APIXABAN
  5. OPSUMIT [Suspect]
     Active Substance: MACITENTAN
     Indication: PULMONARY HYPERTENSION
     Dosage: 10 MG, QD
     Route: 048

REACTIONS (9)
  - Catheter site haemorrhage [Unknown]
  - Catheter site pain [Unknown]
  - Catheter site bruise [Unknown]
  - Diarrhoea [Unknown]
  - Catheter site erythema [Unknown]
  - Catheter site warmth [Unknown]
  - Catheter site swelling [Unknown]
  - Headache [Unknown]
  - Catheter site extravasation [Unknown]

NARRATIVE: CASE EVENT DATE: 201902
